FAERS Safety Report 19449236 (Version 1)
Quarter: 2021Q2

REPORT INFORMATION
  Report Type: Spontaneous
  Country: US (occurrence: US)
  Receive Date: 20210622
  Receipt Date: 20210622
  Transmission Date: 20210717
  Serious: No
  Sender: FDA-Public Use
  Company Number: US-NEXGEN PHARMA, INC.-2112994

PATIENT
  Age: 18 Year
  Sex: Male

DRUGS (3)
  1. SENNA [Concomitant]
     Active Substance: SENNA LEAF\SENNOSIDES\SENNOSIDES A AND B
     Route: 065
  2. MIRALAX [Concomitant]
     Active Substance: POLYETHYLENE GLYCOL 3350
     Route: 048
  3. CHENODAL [Suspect]
     Active Substance: CHENODIOL
     Indication: LIPID METABOLISM DISORDER
     Route: 048
     Dates: start: 20210228, end: 20210611

REACTIONS (1)
  - Abdominal distension [Not Recovered/Not Resolved]
